FAERS Safety Report 6158413-6 (Version None)
Quarter: 2009Q2

REPORT INFORMATION
  Report Type: 
  Country: None (occurrence: None)
  Receive Date: 20090414
  Receipt Date: 20090414
  Transmission Date: 20091009
  Serious: Yes (Life-Threatening)
  Sender: FDA-Public Use
  Company Number: None

PATIENT
  Age: 72 Year
  Sex: Female
  Weight: 70.3075 kg

DRUGS (10)
  1. TYLENOL W/ CODEINE [Suspect]
     Indication: PAIN
     Dosage: 1 TAB EVERY 4 HOURS PRN PO
     Route: 048
     Dates: start: 20090302, end: 20090312
  2. CELEXA [Concomitant]
  3. CLONIDINE [Concomitant]
  4. LISINOPRIL [Concomitant]
  5. SIMVASTATIN [Concomitant]
  6. ASPIRIN [Concomitant]
  7. LANTUS [Concomitant]
  8. METOPROLOL SUCCINATE [Concomitant]
  9. ZETIA [Concomitant]
  10. METFORMIN HCL [Concomitant]

REACTIONS (3)
  - EOSINOPHILIA [None]
  - HYPERSENSITIVITY [None]
  - RENAL FAILURE ACUTE [None]
